FAERS Safety Report 13137778 (Version 2)
Quarter: 2017Q2

REPORT INFORMATION
  Report Type: Spontaneous
  Country: RU (occurrence: RU)
  Receive Date: 20170123
  Receipt Date: 20170602
  Transmission Date: 20170830
  Serious: Yes (Hospitalization)
  Sender: FDA-Public Use
  Company Number: RU-ASTRAZENECA-2017SE05034

PATIENT
  Age: 64 Year
  Sex: Female
  Weight: 120 kg

DRUGS (11)
  1. BRILINTA [Suspect]
     Active Substance: TICAGRELOR
     Indication: MYOCARDIAL INFARCTION
     Route: 048
     Dates: start: 20161114
  2. ATORVASTATIN [Concomitant]
     Active Substance: ATORVASTATIN
  3. DIUVER [Concomitant]
     Active Substance: TORSEMIDE
  4. BISOPROLOL [Concomitant]
     Active Substance: BISOPROLOL
  5. DIABETON [Concomitant]
     Active Substance: GLICLAZIDE
  6. PERINDOPRIL [Concomitant]
     Active Substance: PERINDOPRIL
  7. TRIGRIM [Concomitant]
  8. CARDIOMAGNYL [Concomitant]
     Active Substance: ASPIRIN\MAGNESIUM HYDROXIDE
  9. VEROSPIRON [Concomitant]
     Active Substance: SPIRONOLACTONE
  10. CONCOR [Concomitant]
     Active Substance: BISOPROLOL FUMARATE
  11. SYDNOPHARM [Concomitant]

REACTIONS (3)
  - Contusion [Unknown]
  - Influenza [Recovered/Resolved]
  - Dyspnoea [Recovering/Resolving]

NARRATIVE: CASE EVENT DATE: 201611
